FAERS Safety Report 9778505 (Version 5)
Quarter: 2014Q1

REPORT INFORMATION
  Report Type: Report from Study
  Country: CA (occurrence: CA)
  Receive Date: 20131223
  Receipt Date: 20140217
  Transmission Date: 20141002
  Serious: Yes (Death, Hospitalization, Other)
  Sender: FDA-Public Use
  Company Number: CA-BAYER-2013-147434

PATIENT
  Age: 58 Year
  Sex: Female

DRUGS (9)
  1. STIVARGA [Suspect]
     Indication: COLORECTAL CANCER METASTATIC
     Dosage: 160 MG, QD
     Route: 048
     Dates: start: 20131127, end: 201312
  2. STIVARGA [Suspect]
     Indication: COLORECTAL CANCER METASTATIC
     Dosage: 120 MG, QD
     Route: 048
     Dates: start: 20131211, end: 201401
  3. STIVARGA [Suspect]
     Indication: COLORECTAL CANCER METASTATIC
     Dosage: 80 MG, QD
     Route: 048
     Dates: start: 20140121, end: 20140203
  4. MULTIVITAMIN [Concomitant]
     Dosage: 1 TAB, BID
  5. DEXILANT [Concomitant]
     Dosage: 60MG, QD
  6. DILTIAZEM [Concomitant]
     Dosage: 240MG, QD
  7. SPIRONOLACTONE [Concomitant]
     Dosage: 25MG, BID
  8. SLOW-K [Concomitant]
     Dosage: 600MG, TWO TABS, QD
  9. IRON [Concomitant]
     Dosage: 1 DF, QD

REACTIONS (15)
  - Fatigue [None]
  - Dysphonia [None]
  - Feeling cold [None]
  - Musculoskeletal chest pain [None]
  - Pain [Recovered/Resolved]
  - Blood pressure systolic increased [None]
  - Tachycardia [None]
  - Red blood cell count decreased [None]
  - Blood potassium decreased [None]
  - Heart rate irregular [None]
  - Heart rate increased [None]
  - Dyspnoea [None]
  - Fatigue [None]
  - Hypersomnia [None]
  - Death [Fatal]
